FAERS Safety Report 16408256 (Version 1)
Quarter: 2019Q2

REPORT INFORMATION
  Report Type: Report from Study
  Country: TW (occurrence: TW)
  Receive Date: 20190610
  Receipt Date: 20190610
  Transmission Date: 20190711
  Serious: Yes (Other)
  Sender: FDA-Public Use
  Company Number: TW-ROCHE-2329079

PATIENT
  Sex: Female

DRUGS (1)
  1. BEVACIZUMAB. [Suspect]
     Active Substance: BEVACIZUMAB
     Indication: OVARIAN CANCER
     Route: 065

REACTIONS (10)
  - Proteinuria [Unknown]
  - Gastrointestinal haemorrhage [Unknown]
  - Arthralgia [Unknown]
  - Joint range of motion decreased [Unknown]
  - Musculoskeletal pain [Unknown]
  - Gastrointestinal perforation [Unknown]
  - Hypertension [Unknown]
  - Respiratory tract haemorrhage [Unknown]
  - Embolism [Unknown]
  - Wound complication [Unknown]
